FAERS Safety Report 15165878 (Version 2)
Quarter: 2018Q3

REPORT INFORMATION
  Report Type: Spontaneous
  Country: US (occurrence: US)
  Receive Date: 20180719
  Receipt Date: 20180813
  Transmission Date: 20181010
  Serious: Yes (Other)
  Sender: FDA-Public Use
  Company Number: US-BAYER-2017-218887

PATIENT
  Sex: Female

DRUGS (1)
  1. MIRENA [Suspect]
     Active Substance: LEVONORGESTREL
     Dosage: 20 MCG/24HR, CONT
     Route: 015
     Dates: start: 20131113, end: 20141117

REACTIONS (18)
  - Device breakage [Unknown]
  - Nausea [Recovered/Resolved]
  - Change of bowel habit [Recovered/Resolved]
  - Abdominal distension [Unknown]
  - Decreased appetite [Recovered/Resolved]
  - Migraine [Unknown]
  - Dyspareunia [Recovered/Resolved]
  - Pelvic pain [Unknown]
  - Uterine perforation [Unknown]
  - Abdominal pain lower [Recovered/Resolved]
  - Bladder disorder [Unknown]
  - Alopecia [Recovered/Resolved]
  - Vulvovaginal pain [Recovered/Resolved]
  - Uterine perforation [None]
  - Urinary tract disorder [Unknown]
  - Headache [Unknown]
  - Fatigue [Unknown]
  - Back pain [Unknown]
